FAERS Safety Report 9916698 (Version 1)
Quarter: 2014Q1

REPORT INFORMATION
  Report Type: Spontaneous
  Country: FR (occurrence: FR)
  Receive Date: 20140221
  Receipt Date: 20140221
  Transmission Date: 20141002
  Serious: Yes (Life-Threatening, Hospitalization)
  Sender: FDA-Public Use
  Company Number: FR-PFIZER INC-2014046966

PATIENT
  Age: 81 Year
  Sex: Female

DRUGS (2)
  1. CAMPTO [Suspect]
     Dosage: 360 MG, SINGLE
     Route: 041
     Dates: start: 20140102
  2. COVERSYL [Concomitant]
     Indication: HYPERTENSION

REACTIONS (1)
  - Anaphylactic shock [Recovered/Resolved]
